FAERS Safety Report 18799359 (Version 1)
Quarter: 2021Q1

REPORT INFORMATION
  Report Type: Spontaneous
  Country: US (occurrence: US)
  Receive Date: 20210128
  Receipt Date: 20210128
  Transmission Date: 20210419
  Serious: Yes (Death, Life-Threatening, Hospitalization, Other)
  Sender: FDA-Public Use
  Company Number: None

PATIENT
  Age: 64 Year
  Sex: Male
  Weight: 87.1 kg

DRUGS (7)
  1. PHENYLEPHRINE [Concomitant]
     Active Substance: PHENYLEPHRINE HYDROCHLORIDE
     Dates: start: 20210126, end: 20210126
  2. BARICITINIB. [Suspect]
     Active Substance: BARICITINIB
     Indication: ACUTE KIDNEY INJURY
     Route: 048
     Dates: start: 20210117, end: 20210126
  3. DEXAMETHASONE. [Concomitant]
     Active Substance: DEXAMETHASONE
     Dates: start: 20210117, end: 20210126
  4. REMDESIVIR. [Concomitant]
     Active Substance: REMDESIVIR
     Dates: start: 20210113, end: 20210117
  5. NOREPINEPHRINE. [Concomitant]
     Active Substance: NOREPINEPHRINE
     Dates: start: 20210124, end: 20210126
  6. BARICITINIB. [Suspect]
     Active Substance: BARICITINIB
     Indication: COVID-19
     Route: 048
     Dates: start: 20210117, end: 20210126
  7. VASOPRESSIN. [Concomitant]
     Active Substance: VASOPRESSIN
     Dates: start: 20210125, end: 20210126

REACTIONS (9)
  - Hypoxia [None]
  - Acute kidney injury [None]
  - Respiratory failure [None]
  - Shock [None]
  - Embolism [None]
  - Sepsis [None]
  - Arterial haemorrhage [None]
  - Retroperitoneal haemorrhage [None]
  - Blood pressure abnormal [None]

NARRATIVE: CASE EVENT DATE: 20210125
